FAERS Safety Report 8256874-X (Version None)
Quarter: 2012Q1

REPORT INFORMATION
  Report Type: 
  Country: None (occurrence: None)
  Receive Date: 20120330
  Receipt Date: 20120330
  Transmission Date: 20120608
  Serious: Yes (Other)
  Sender: FDA-Public Use
  Company Number: None

PATIENT
  Sex: Female
  Weight: 117.9352 kg

DRUGS (1)
  1. AZELASTINE HCL [Suspect]
     Indication: VASOMOTOR RHINITIS
     Dosage: 1-2 SPRAYS PER NOSTRIL PRN UP TO X2 DAY NASAL SPRAY
     Route: 045
     Dates: start: 20120210, end: 20120301

REACTIONS (4)
  - BURNING SENSATION [None]
  - SINUS DISORDER [None]
  - HEADACHE [None]
  - THROAT IRRITATION [None]
